FAERS Safety Report 11951278 (Version 1)
Quarter: 2016Q1

REPORT INFORMATION
  Report Type: Spontaneous
  Country: US (occurrence: None)
  Receive Date: 20160122
  Receipt Date: 20160122
  Transmission Date: 20160526
  Serious: Yes (Other)
  Sender: FDA-Public Use
  Company Number: None

PATIENT
  Age: 17 Year
  Sex: Female
  Weight: 67.5 kg

DRUGS (11)
  1. LACTULOSE. [Concomitant]
     Active Substance: LACTULOSE
  2. ZOFRAN [Concomitant]
     Active Substance: ONDANSETRON HYDROCHLORIDE
  3. ACETAMINOPHEN. [Concomitant]
     Active Substance: ACETAMINOPHEN
  4. MORPHINE [Concomitant]
     Active Substance: MORPHINE
  5. LEVOFLOXACIN. [Concomitant]
     Active Substance: LEVOFLOXACIN
  6. KETOROLAC [Suspect]
     Active Substance: KETOROLAC\KETOROLAC TROMETHAMINE
     Indication: APPENDICITIS
     Route: 042
     Dates: start: 20160106, end: 20160107
  7. BUPIVACAINE [Concomitant]
     Active Substance: BUPIVACAINE
  8. PROCHLORPERAZINE 10 MG/2 ML BEDFORD LABORATORIES [Suspect]
     Active Substance: PROCHLORPERAZINE
     Indication: NAUSEA
     Route: 030
     Dates: start: 20160106, end: 20160107
  9. HYDROMORPHONE [Concomitant]
     Active Substance: HYDROMORPHONE
  10. FLAGYL [Concomitant]
     Active Substance: METRONIDAZOLE\METRONIDAZOLE HYDROCHLORIDE
  11. SCOPOLAMINE PATCH [Concomitant]
     Active Substance: SCOPOLAMINE

REACTIONS (7)
  - Vision blurred [None]
  - Extrapyramidal disorder [None]
  - Fear [None]
  - Anxiety [None]
  - Chest discomfort [None]
  - Feeling abnormal [None]
  - Muscle rigidity [None]

NARRATIVE: CASE EVENT DATE: 20160107
